FAERS Safety Report 19591971 (Version 2)
Quarter: 2022Q1

REPORT INFORMATION
  Report Type: Spontaneous
  Country: US (occurrence: None)
  Receive Date: 20210722
  Receipt Date: 20220211
  Transmission Date: 20220423
  Serious: Yes (Other)
  Sender: FDA-Public Use
  Company Number: 2021A619773

PATIENT
  Age: 42 Year
  Sex: Female
  Weight: 63.5 kg

DRUGS (22)
  1. PRILOSEC [Suspect]
     Active Substance: OMEPRAZOLE MAGNESIUM
     Indication: Gastrooesophageal reflux disease
     Route: 048
     Dates: start: 2007, end: 2018
  2. PRILOSEC [Suspect]
     Active Substance: OMEPRAZOLE MAGNESIUM
     Indication: Gastrooesophageal reflux disease
     Route: 048
     Dates: start: 20180911
  3. PRILOSEC [Suspect]
     Active Substance: OMEPRAZOLE MAGNESIUM
     Indication: Gastrooesophageal reflux disease
     Route: 048
  4. PRILOSEC OTC [Suspect]
     Active Substance: OMEPRAZOLE MAGNESIUM
     Indication: Gastrooesophageal reflux disease
     Route: 048
     Dates: start: 2007, end: 2018
  5. SIMVASTATIN [Concomitant]
     Active Substance: SIMVASTATIN
     Indication: Hyperlipidaemia
  6. LISINOPRIL [Concomitant]
     Active Substance: LISINOPRIL
     Indication: Hypertension
  7. CIPROFLOXACIN [Concomitant]
     Active Substance: CIPROFLOXACIN
     Indication: Infection
  8. AZITHROMYCIN [Concomitant]
     Active Substance: AZITHROMYCIN
     Indication: Infection
  9. AMOXICILLIN [Concomitant]
     Active Substance: AMOXICILLIN
     Indication: Infection
  10. TRAMADOL [Concomitant]
     Active Substance: TRAMADOL
     Indication: Pain
  11. NAPROXEN [Concomitant]
     Active Substance: NAPROXEN
     Indication: Pain
  12. DOXYCYCLINE [Concomitant]
     Active Substance: DOXYCYCLINE
     Indication: Infection
  13. DICLOFENAC [Concomitant]
     Active Substance: DICLOFENAC
     Indication: Pain
  14. PENICILLIN [Concomitant]
     Active Substance: PENICILLIN
     Indication: Infection
  15. ATORVASTATIN [Concomitant]
     Active Substance: ATORVASTATIN
     Indication: Hyperlipidaemia
  16. MELOXICAM [Concomitant]
     Active Substance: MELOXICAM
     Indication: Pain
  17. DOXEPIN [Concomitant]
     Active Substance: DOXEPIN
     Indication: Depression
  18. RANITIDINE HYDROCHLORIDE [Concomitant]
     Active Substance: RANITIDINE HYDROCHLORIDE
  19. SUMATRIPTAN [Concomitant]
     Active Substance: SUMATRIPTAN
  20. TROKENDI XR [Concomitant]
     Active Substance: TOPIRAMATE
  21. GABAPENTIN [Concomitant]
     Active Substance: GABAPENTIN
  22. VENTOLIN [Concomitant]
     Active Substance: ALBUTEROL SULFATE

REACTIONS (2)
  - Chronic kidney disease [Not Recovered/Not Resolved]
  - Gastrooesophageal reflux disease [Not Recovered/Not Resolved]

NARRATIVE: CASE EVENT DATE: 20170101
